FAERS Safety Report 5423594-6 (Version None)
Quarter: 2007Q3

REPORT INFORMATION
  Report Type: 
  Country: None (occurrence: None)
  Receive Date: 20070823
  Receipt Date: 20070820
  Transmission Date: 20080115
  Serious: Yes (Life-Threatening)
  Sender: FDA-Public Use
  Company Number: FR-AVENTIS-200711697FR

PATIENT
  Age: 93 Year
  Sex: Female

DRUGS (7)
  1. LASILIX                            /00032601/ [Suspect]
     Indication: DRUG USE FOR UNKNOWN INDICATION
     Route: 048
  2. CELECTOL [Suspect]
  3. SERC                               /00141802/ [Suspect]
     Route: 048
  4. KARDEGIC                           /00002703/ [Suspect]
     Route: 048
  5. INIPOMP                            /01263201/ [Suspect]
     Route: 048
  6. PROTELOS [Suspect]
     Indication: OSTEOPOROSIS
     Dates: start: 20061005
  7. STILNOX                            /00914901/ [Suspect]
     Route: 048

REACTIONS (3)
  - APHASIA [None]
  - DIABETIC HYPEROSMOLAR COMA [None]
  - HYPERGLYCAEMIA [None]
